FAERS Safety Report 9753819 (Version 2)
Quarter: 2015Q3

REPORT INFORMATION
  Report Type: Spontaneous
  Country: US (occurrence: US)
  Receive Date: 20131213
  Receipt Date: 20150805
  Transmission Date: 20151125
  Serious: No
  Sender: FDA-Public Use
  Company Number: US-GILEAD-2010-0027197

PATIENT
  Age: 85 Year
  Sex: Female
  Weight: 63.5 kg

DRUGS (20)
  1. LETAIRIS [Suspect]
     Active Substance: AMBRISENTAN
     Indication: PULMONARY ARTERIAL HYPERTENSION
     Route: 048
     Dates: start: 20091111
  2. ETODOLAC ER [Concomitant]
     Active Substance: ETODOLAC
  3. VITAMIN D [Concomitant]
     Active Substance: CHOLECALCIFEROL
  4. PAMELOR [Concomitant]
     Active Substance: NORTRIPTYLINE HYDROCHLORIDE
  5. VENTAVIS [Concomitant]
     Active Substance: ILOPROST
  6. LASIX [Concomitant]
     Active Substance: FUROSEMIDE
  7. COSOPT EYE DROP [Concomitant]
  8. XALATAN EYE DROP [Concomitant]
  9. OXYGEN. [Concomitant]
     Active Substance: OXYGEN
  10. SINGULAIR [Concomitant]
     Active Substance: MONTELUKAST SODIUM
  11. IPRATR-ALBUTEROL [Concomitant]
  12. OMEGA 3 FISH OIL [Concomitant]
     Active Substance: FISH OIL\OMEGA-3 FATTY ACIDS
  13. QUINAPRIL [Concomitant]
     Active Substance: QUINAPRIL\QUINAPRIL HYDROCHLORIDE
  14. HYDROCODONE BITARTRATE AND ACETAMINOPHEN [Concomitant]
     Active Substance: ACETAMINOPHEN\HYDROCODONE BITARTRATE
  15. LEVOTHYROXINE. [Concomitant]
     Active Substance: LEVOTHYROXINE
  16. ADVAIR 100-50 DISK [Concomitant]
  17. NITROGLYCERIN. [Concomitant]
     Active Substance: NITROGLYCERIN
  18. BONIVA [Concomitant]
     Active Substance: IBANDRONATE SODIUM
  19. FOLIC ACID. [Concomitant]
     Active Substance: FOLIC ACID
  20. PRILOSEC [Concomitant]
     Active Substance: OMEPRAZOLE MAGNESIUM

REACTIONS (1)
  - Dyspnoea [Unknown]
